FAERS Safety Report 9422383 (Version 1)
Quarter: 2013Q3

REPORT INFORMATION
  Report Type: Spontaneous
  Country: US (occurrence: US)
  Receive Date: 20130726
  Receipt Date: 20130726
  Transmission Date: 20140515
  Serious: No
  Sender: FDA-Public Use
  Company Number: US-009507513-1307USA009375

PATIENT
  Sex: 0

DRUGS (1)
  1. NEXPLANON [Suspect]
     Dosage: UNK DF, UNK
     Route: 003
     Dates: start: 20130701

REACTIONS (3)
  - Device deployment issue [Unknown]
  - No adverse event [Unknown]
  - Incorrect route of drug administration [Unknown]
